FAERS Safety Report 20949087 (Version 1)
Quarter: 2022Q2

REPORT INFORMATION
  Report Type: Other
  Country: DE (occurrence: DE)
  Receive Date: 20220613
  Receipt Date: 20220613
  Transmission Date: 20220721
  Serious: Yes (Other)
  Sender: FDA-Public Use
  Company Number: DE-CELLTRION INC.-2022DE008766

PATIENT

DRUGS (19)
  1. RITUXIMAB [Suspect]
     Active Substance: RITUXIMAB
     Indication: Diffuse large B-cell lymphoma
     Dosage: FIRST LINE WITH CHOP AND MTX, 6 CYCLES FROM MAY/2017 UNTIL SEP/207, PARTIAL REMISSION WAS TREATED WI
     Route: 065
     Dates: start: 201705, end: 201709
  2. RITUXIMAB [Suspect]
     Active Substance: RITUXIMAB
     Dosage: THIRD LINE WITH RITUXIMAB AND DHAP FOR ONE CYCLE, DIVERGENT.
     Route: 065
     Dates: start: 201807
  3. RITUXIMAB [Suspect]
     Active Substance: RITUXIMAB
     Dosage: SECOND LINE WITH RITUXIMAB AND ICE (IFOSFAMIDE, CARBOPLATIN, ETOPOSIDE) FOR TWO CYCLES,
     Route: 065
     Dates: start: 201606, end: 201707
  4. VINCRISTINE [Suspect]
     Active Substance: VINCRISTINE
     Indication: Diffuse large B-cell lymphoma
     Dosage: FIRST LINE WITH CHOP AND MTX, 6 CYCLES FROM MAY/2017 UNTIL SEP/207, PARTIAL REMISSION WAS TREATED WI
     Route: 065
     Dates: start: 201705, end: 201709
  5. GEMCITABINE [Suspect]
     Active Substance: GEMCITABINE
     Indication: Diffuse large B-cell lymphoma
     Dosage: FOURTH LINE WITH GEMOX FOR THREE CYCLES, PROGRESSION OF DISEASE.
     Route: 065
     Dates: start: 201808, end: 201811
  6. ETOPOSIDE [Suspect]
     Active Substance: ETOPOSIDE
     Indication: Diffuse large B-cell lymphoma
     Dosage: SECOND LINE WITH RITUXIMAB AND ICE FOR TWO CYCLES,
     Route: 065
     Dates: start: 201606, end: 201701
  7. ETOPOSIDE [Suspect]
     Active Substance: ETOPOSIDE
     Dosage: FIFTH LINE WITH LEAM AS WELL AS ALLOGENEIC STEM CELL TRANSPLANTATION, PROGRESSION OF DISEASE.
     Route: 065
     Dates: start: 201812
  8. CYTARABINE [Suspect]
     Active Substance: CYTARABINE
     Indication: Diffuse large B-cell lymphoma
     Dosage: THIRD LINE WITH RITUXIMAB AND DHAP FOR ONE CYCLE,DIVERGENT.
     Route: 065
     Dates: start: 201807
  9. CYTARABINE [Suspect]
     Active Substance: CYTARABINE
     Dosage: FIFTH LINE WITH LEAM AS WELL AS ALLOGENEIC STEM CELL TRANSPLANTATION, PROGRESSION OF DISEASE.
     Route: 065
     Dates: start: 201812
  10. PREDNISONE [Suspect]
     Active Substance: PREDNISONE
     Indication: Diffuse large B-cell lymphoma
     Dosage: FIRST LINE WITH CHOP AND MTX, 6 CYCLES FROM MAY/2017 UNTIL SEP/207, PARTIAL REMISSION WAS TREATED WI
     Route: 065
     Dates: start: 201705, end: 201709
  11. LOMUSTINE [Suspect]
     Active Substance: LOMUSTINE
     Indication: Diffuse large B-cell lymphoma
     Dosage: FIFTH LINE WITH LEAM AS WELL AS ALLOGENEIC STEM CELL TRANSPLANTATION, PROGRESSION OF DISEASE.
     Route: 065
     Dates: start: 201812
  12. IFOSFAMIDE [Suspect]
     Active Substance: IFOSFAMIDE
     Indication: Diffuse large B-cell lymphoma
     Dosage: SECOND LINE WITH RITUXIMAB AND ICE FOR TWO CYCLES,
     Route: 065
     Dates: start: 201606, end: 201707
  13. CYCLOPHOSPHAMIDE [Suspect]
     Active Substance: CYCLOPHOSPHAMIDE
     Indication: Diffuse large B-cell lymphoma
     Dosage: FIRST LINE WITH CHOP AND MTX, 6 CYCLES FROM MAY/2017 UNTIL SEP/207, PARTIAL REMISSION WAS TREATED WI
     Route: 065
     Dates: start: 201705, end: 201709
  14. DEXAMETHASONE [Suspect]
     Active Substance: DEXAMETHASONE
     Indication: Diffuse large B-cell lymphoma
     Dosage: THIRD LINE WITH RITUXIMAB AND DHAP FOR ONE CYCLE, DIVERGENT
     Route: 065
     Dates: start: 201807
  15. CARBOPLATIN [Suspect]
     Active Substance: CARBOPLATIN
     Indication: Diffuse large B-cell lymphoma
     Dosage: SECOND LINE WITH RITUXIMAB AND ICE FOR TWO CYCLES,
     Route: 065
     Dates: start: 201606, end: 201707
  16. MELPHALAN [Suspect]
     Active Substance: MELPHALAN
     Indication: Diffuse large B-cell lymphoma
     Dosage: FIFTH LINE WITH LEAM AS WELL AS ALLOGENEIC STEM CELL TRANSPLANTATION, PROGRESSION OF DISEASE.
     Route: 065
     Dates: start: 201812
  17. CISPLATIN [Suspect]
     Active Substance: CISPLATIN
     Indication: Diffuse large B-cell lymphoma
     Dosage: DIFFUSE LARGE B-CELL LYMPHOMA
     Route: 065
     Dates: start: 201807
  18. DOXORUBICIN [Suspect]
     Active Substance: DOXORUBICIN
     Indication: Diffuse large B-cell lymphoma
     Dosage: FIRST LINE WITH CHOP AND MTX, 6 CYCLES FROM MAY/2017 UNTIL SEP/207, PARTIAL REMISSION WAS TREATED WI
     Route: 065
     Dates: start: 201705, end: 201709
  19. OXALIPLATIN [Suspect]
     Active Substance: OXALIPLATIN
     Indication: Diffuse large B-cell lymphoma
     Dosage: FOURTH LINE WITH GEMOX FOR THREE CYCLES, PROGRESSION OF DISEASE.
     Route: 065
     Dates: start: 201808, end: 201811

REACTIONS (1)
  - Graft versus host disease [Unknown]
